FAERS Safety Report 8543670-9 (Version None)
Quarter: 2012Q3

REPORT INFORMATION
  Report Type: 
  Country: None (occurrence: None)
  Receive Date: 20120727
  Receipt Date: 20120708
  Transmission Date: 20120928
  Serious: Yes (Life-Threatening, Hospitalization)
  Sender: FDA-Public Use
  Company Number: NL-BAUSCH-BL-2012-000055

PATIENT
  Age: 27 Year
  Sex: Female

DRUGS (6)
  1. CITALOPRAM [Concomitant]
  2. METRONIDAZOLE [Concomitant]
     Indication: CLOSTRIDIAL INFECTION
     Dosage: 500 MG THREE TIMES DAILY FOR 10 DAYS; ORAL
     Route: 048
  3. ARIPIPRAZOLE [Concomitant]
  4. DESMOPRESSIN ACETATE (DDAVP) [Suspect]
     Indication: ENURESIS
     Dosage: 200 MICROGRAM ONCE DAILY; ORAL
     Route: 048
  5. TOPIRAMATE [Concomitant]
  6. ALPRAZOLAM [Concomitant]

REACTIONS (22)
  - GENERAL PHYSICAL HEALTH DETERIORATION [None]
  - ARTERIAL THROMBOSIS [None]
  - PROTEIN C DECREASED [None]
  - INTESTINAL ISCHAEMIA [None]
  - MESENTERIC OCCLUSION [None]
  - SPLENIC NECROSIS [None]
  - HEPATIC ARTERY OCCLUSION [None]
  - CLOSTRIDIUM DIFFICILE COLITIS [None]
  - BLOOD CREATININE DECREASED [None]
  - ILEUS [None]
  - ANTIPHOSPHOLIPID SYNDROME [None]
  - HYPOPHAGIA [None]
  - PSEUDOMEMBRANOUS COLITIS [None]
  - BLOOD LACTIC ACID INCREASED [None]
  - HEPATIC NECROSIS [None]
  - COELIAC ARTERY OCCLUSION [None]
  - ARTERIAL OCCLUSIVE DISEASE [None]
  - BLOOD POTASSIUM DECREASED [None]
  - GASTROOESOPHAGEAL REFLUX DISEASE [None]
  - PROTEIN S DECREASED [None]
  - HYPERCOAGULATION [None]
  - HYPONATRAEMIA [None]
